FAERS Safety Report 7314795-0 (Version None)
Quarter: 2011Q1

REPORT INFORMATION
  Report Type: 
  Country: None (occurrence: None)
  Receive Date: 20110225
  Receipt Date: 20110113
  Transmission Date: 20110831
  Serious: No
  Sender: FDA-Public Use
  Company Number: US-MYLANLABS-2010S1022831

PATIENT
  Age: 18 Year
  Sex: Male
  Weight: 84 kg

DRUGS (3)
  1. AMNESTEEM [Suspect]
     Dates: end: 20101201
  2. CLARAVIS [Suspect]
     Indication: ACNE
  3. AMNESTEEM [Suspect]
     Indication: ACNE
     Dates: start: 20100601

REACTIONS (2)
  - IRRITABILITY [None]
  - ANGER [None]
